FAERS Safety Report 4390768-5 (Version None)
Quarter: 2004Q3

REPORT INFORMATION
  Report Type: 
  Country: None (occurrence: None)
  Receive Date: 20040706
  Receipt Date: 20040706
  Transmission Date: 20050211
  Serious: Yes (Hospitalization)
  Sender: FDA-Public Use
  Company Number: None

PATIENT
  Age: 45 Year
  Sex: Male
  Weight: 98 kg

DRUGS (1)
  1. RAPTIVA [Suspect]
     Indication: PSORIASIS
     Dosage: 1 MG/KG EVERY WEEK SQ
     Route: 058
     Dates: start: 20040201, end: 20040606

REACTIONS (6)
  - CONDITION AGGRAVATED [None]
  - PAIN IN EXTREMITY [None]
  - PSORIASIS [None]
  - PYREXIA [None]
  - RASH ERYTHEMATOUS [None]
  - RASH PUSTULAR [None]
